FAERS Safety Report 8616880-X (Version None)
Quarter: 2012Q3

REPORT INFORMATION
  Report Type: 
  Country: None (occurrence: None)
  Receive Date: 20120823
  Receipt Date: 20120810
  Transmission Date: 20120928
  Serious: No
  Sender: FDA-Public Use
  Company Number: US-009507513-1208USA003018

PATIENT

DRUGS (2)
  1. EMEND [Suspect]
     Indication: NAUSEA
     Dosage: UNK
     Dates: start: 20120809
  2. EMEND [Suspect]
     Indication: VOMITING

REACTIONS (2)
  - NO ADVERSE EVENT [None]
  - INCORRECT ROUTE OF DRUG ADMINISTRATION [None]
